FAERS Safety Report 6120602-4 (Version None)
Quarter: 2009Q1

REPORT INFORMATION
  Report Type: 
  Country: None (occurrence: None)
  Receive Date: 20090317
  Receipt Date: 20090302
  Transmission Date: 20090719
  Serious: Yes (Hospitalization)
  Sender: FDA-Public Use
  Company Number: NL-AVENTIS-200911825GDDC

PATIENT
  Age: 45 Year
  Sex: Male
  Weight: 77 kg

DRUGS (9)
  1. DOCETAXEL [Suspect]
     Route: 042
     Dates: start: 20070706, end: 20070706
  2. OTHER ANTINEOPLASTIC AGENTS [Suspect]
     Route: 042
     Dates: start: 20070705, end: 20070705
  3. PARACETAMOL [Concomitant]
  4. PANTOPRAZOL [Concomitant]
     Route: 048
     Dates: start: 20070313
  5. NEULASTA [Concomitant]
     Route: 058
     Dates: start: 20070708, end: 20070708
  6. ALLERGODIL NEVEL [Concomitant]
     Route: 045
  7. METOCLOPRAMIDE HYDROCHLORIDE [Concomitant]
     Route: 042
     Dates: start: 20070710, end: 20070715
  8. LACTULOSE [Concomitant]
     Route: 048
     Dates: start: 20070713, end: 20070715
  9. FUROSEMIDE [Concomitant]
     Route: 042
     Dates: start: 20070718, end: 20070718

REACTIONS (4)
  - ATELECTASIS [None]
  - OESOPHAGEAL FISTULA [None]
  - PNEUMONIA [None]
  - PYOTHORAX [None]
